FAERS Safety Report 7430965-5 (Version None)
Quarter: 2011Q2

REPORT INFORMATION
  Report Type: 
  Country: None (occurrence: None)
  Receive Date: 20110421
  Receipt Date: 20110414
  Transmission Date: 20111010
  Serious: Yes (Hospitalization, Other)
  Sender: FDA-Public Use
  Company Number: PHHY2011US32293

PATIENT
  Age: 46 Year
  Sex: Male

DRUGS (2)
  1. SILDENAFIL [Suspect]
  2. WARFARIN [Suspect]

REACTIONS (9)
  - OEDEMA [None]
  - SCROTAL OEDEMA [None]
  - ECCHYMOSIS [None]
  - TENDERNESS [None]
  - ERECTILE DYSFUNCTION [None]
  - PENILE DISCHARGE [None]
  - PENIS DISORDER [None]
  - PENILE CURVATURE [None]
  - PENILE SWELLING [None]
